FAERS Safety Report 21424090 (Version 1)
Quarter: 2022Q4

REPORT INFORMATION
  Report Type: Spontaneous
  Country: US (occurrence: None)
  Receive Date: 20221007
  Receipt Date: 20221007
  Transmission Date: 20230113
  Serious: Yes (Other)
  Sender: FDA-Public Use
  Company Number: None

PATIENT
  Age: 74 Year
  Sex: Male
  Weight: 79.38 kg

DRUGS (8)
  1. PAXLOVID [Suspect]
     Active Substance: NIRMATRELVIR\RITONAVIR
     Indication: COVID-19
     Dosage: FREQUENCY : TWICE A DAY;?
     Route: 048
     Dates: start: 20220929, end: 20220930
  2. FELODIPINE [Concomitant]
     Active Substance: FELODIPINE
  3. POTASSIUM PLUS [Concomitant]
  4. tamsuloscin [Concomitant]
  5. VITAMIN E [Concomitant]
     Active Substance: .ALPHA.-TOCOPHEROL
  6. men^s 50 plus multivitamin [Concomitant]
  7. MELATONIN [Concomitant]
     Active Substance: MELATONIN
  8. FISH OIL [Concomitant]
     Active Substance: FISH OIL

REACTIONS (4)
  - Malaise [None]
  - Nasopharyngitis [None]
  - Throat tightness [None]
  - Swelling [None]

NARRATIVE: CASE EVENT DATE: 20220930
